FAERS Safety Report 7913071-2 (Version None)
Quarter: 2011Q4

REPORT INFORMATION
  Report Type: 
  Country: None (occurrence: None)
  Receive Date: 20111114
  Receipt Date: 20111109
  Transmission Date: 20120403
  Serious: Yes (Other)
  Sender: FDA-Public Use
  Company Number: DE-SANOFI-AVENTIS-2011SA069957

PATIENT
  Sex: Female

DRUGS (2)
  1. ZOLPIDEM TARTRATE [Suspect]
     Route: 065
     Dates: start: 20111001
  2. ANALGESICS [Concomitant]

REACTIONS (1)
  - UNRESPONSIVE TO STIMULI [None]
